FAERS Safety Report 20991664 (Version 1)
Quarter: 2022Q2

REPORT INFORMATION
  Report Type: Spontaneous
  Country: US (occurrence: US)
  Receive Date: 20220622
  Receipt Date: 20220622
  Transmission Date: 20220721
  Serious: Yes (Other)
  Sender: FDA-Public Use
  Company Number: US-CELGENE-USA-20220302352

PATIENT
  Age: 76 Year
  Sex: Female
  Weight: 50.3 kg

DRUGS (1)
  1. REVLIMID [Suspect]
     Active Substance: LENALIDOMIDE
     Indication: Myelodysplastic syndrome
     Dosage: 10 MILLIGRAM
     Route: 048
     Dates: start: 20210801, end: 20220614

REACTIONS (2)
  - Malignant neoplasm progression [Not Recovered/Not Resolved]
  - Fatigue [Unknown]
